FAERS Safety Report 7765086-5 (Version None)
Quarter: 2011Q3

REPORT INFORMATION
  Report Type: 
  Country: None (occurrence: None)
  Receive Date: 20110921
  Receipt Date: 20110912
  Transmission Date: 20111222
  Serious: Yes (Other)
  Sender: FDA-Public Use
  Company Number: BE-JNJFOC-20110900170

PATIENT
  Age: 34 Year
  Sex: Female
  Weight: 49 kg

DRUGS (5)
  1. REMICADE [Suspect]
     Route: 042
     Dates: start: 20071012, end: 20081213
  2. METHOTREXATE [Concomitant]
     Indication: PROCTOCOLITIS
     Dates: start: 20060601, end: 20090705
  3. NICOTIBINE [Concomitant]
     Indication: PROPHYLAXIS
     Dates: start: 20090613, end: 20091213
  4. REMICADE [Suspect]
     Indication: PROCTOCOLITIS
     Route: 042
     Dates: start: 20090706
  5. RIFADIN [Concomitant]
     Indication: PROPHYLAXIS
     Dates: start: 20090613, end: 20091213

REACTIONS (2)
  - GLIOMA [None]
  - MYCOBACTERIUM TUBERCULOSIS COMPLEX TEST POSITIVE [None]
